FAERS Safety Report 14985432 (Version 1)
Quarter: 2018Q2

REPORT INFORMATION
  Report Type: Spontaneous
  Country: GB (occurrence: GB)
  Receive Date: 20180607
  Receipt Date: 20180607
  Transmission Date: 20180711
  Serious: Yes (Other)
  Sender: FDA-Public Use
  Company Number: GB-TEVA-2018-GB-903519

PATIENT
  Age: 60 Year
  Sex: Male
  Weight: 93 kg

DRUGS (15)
  1. OMEPRAZOLE. [Concomitant]
     Active Substance: OMEPRAZOLE
     Dosage: 1 DOSAGE FORMS DAILY;
     Dates: start: 20170427
  2. DOCUSATE SODIUM. [Concomitant]
     Active Substance: DOCUSATE SODIUM
     Dosage: 2 DOSAGE FORMS DAILY;
     Dates: start: 20170601
  3. GABAPENTIN. [Concomitant]
     Active Substance: GABAPENTIN
     Dosage: 3 DOSAGE FORMS DAILY;
     Dates: start: 20180228
  4. SHORTEC [Concomitant]
     Dosage: TAKE 1-2 MAX OF 6HOURLY FREQUENCY ONLY IF REQUIRED
     Dates: start: 20170427
  5. TRIPTORELIN [Concomitant]
     Active Substance: TRIPTORELIN
     Dosage: USE AS DIRECTED
     Dates: start: 20180117, end: 20180126
  6. TAMSULOSIN HYDROCHLORIDE. [Concomitant]
     Active Substance: TAMSULOSIN HYDROCHLORIDE
     Dosage: 1 DOSAGE FORMS DAILY;
     Dates: start: 20180228
  7. COSMOCOL [Concomitant]
     Dosage: 2 DOSAGE FORMS DAILY;
     Dates: start: 20170427
  8. LOSARTAN. [Concomitant]
     Active Substance: LOSARTAN
     Dosage: 1 DOSAGE FORMS DAILY;
     Dates: start: 20180313
  9. PARACETAMOL [Concomitant]
     Active Substance: ACETAMINOPHEN
     Dosage: 2 DOSAGE FORMS DAILY;
     Dates: start: 20170519
  10. DEXAMETHASONE. [Suspect]
     Active Substance: DEXAMETHASONE
     Route: 065
     Dates: start: 20180326
  11. BICALUTAMIDE. [Concomitant]
     Active Substance: BICALUTAMIDE
     Dosage: 1 DOSAGE FORMS DAILY;
     Dates: start: 20170830
  12. FUROSEMIDE. [Concomitant]
     Active Substance: FUROSEMIDE
     Dosage: 1 DOSAGE FORMS DAILY; IN THE MORNING
     Dates: start: 20170519
  13. LONGTEC [Concomitant]
     Active Substance: OXYCODONE HYDROCHLORIDE
     Dates: start: 20170427
  14. TINZAPARIN [Concomitant]
     Active Substance: TINZAPARIN
     Dosage: 1 DOSAGE FORMS DAILY;
     Dates: start: 20171212
  15. TADALAFIL [Concomitant]
     Active Substance: TADALAFIL
     Dosage: USE AS DIRECTED
     Dates: start: 20170413

REACTIONS (4)
  - Swelling face [Recovered/Resolved]
  - Diabetes mellitus [Recovered/Resolved]
  - Oedema [Recovered/Resolved]
  - Pituitary-dependent Cushing^s syndrome [Recovered/Resolved]

NARRATIVE: CASE EVENT DATE: 20180326
